FAERS Safety Report 16698284 (Version 1)
Quarter: 2019Q3

REPORT INFORMATION
  Report Type: Spontaneous
  Country: US (occurrence: US)
  Receive Date: 20190813
  Receipt Date: 20190813
  Transmission Date: 20191004
  Serious: No
  Sender: FDA-Public Use
  Company Number: US-MYLANLABS-2019M1064093

PATIENT
  Age: 38 Year
  Sex: Male
  Weight: 81 kg

DRUGS (1)
  1. LORAZEPAM. [Suspect]
     Active Substance: LORAZEPAM
     Indication: INSOMNIA
     Dosage: UNK
     Route: 048
     Dates: start: 201905, end: 20190527

REACTIONS (7)
  - Off label use [Recovered/Resolved]
  - Dizziness [Recovered/Resolved]
  - Anxiety [Recovered/Resolved]
  - Palpitations [Recovered/Resolved]
  - Hyperhidrosis [Recovered/Resolved]
  - Drug ineffective [Recovered/Resolved]
  - Nervousness [Recovered/Resolved]

NARRATIVE: CASE EVENT DATE: 201905
